FAERS Safety Report 8302504-8 (Version None)
Quarter: 2012Q2

REPORT INFORMATION
  Report Type: 
  Country: None (occurrence: None)
  Receive Date: 20120420
  Receipt Date: 20120418
  Transmission Date: 20120825
  Serious: Yes (Death)
  Sender: FDA-Public Use
  Company Number: AU-BRISTOL-MYERS SQUIBB COMPANY-16533937

PATIENT
  Age: 58 Year

DRUGS (1)
  1. ONGLYZA [Suspect]

REACTIONS (1)
  - MYOCARDIAL INFARCTION [None]
